FAERS Safety Report 8596842-1 (Version None)
Quarter: 2012Q3

REPORT INFORMATION
  Report Type: 
  Country: None (occurrence: None)
  Receive Date: 20120815
  Receipt Date: 20120810
  Transmission Date: 20120928
  Serious: Yes (Other)
  Sender: FDA-Public Use
  Company Number: PHEH2012US015738

PATIENT
  Sex: Male

DRUGS (5)
  1. ASPIRIN [Concomitant]
     Dosage: UNK UKN, UNK
  2. EXFORGE [Suspect]
     Dosage: 320/10MG, UNK
  3. EXFORGE [Suspect]
     Dosage: 320/5MG, UNK
  4. CELEXA [Concomitant]
     Dosage: UNK UKN, UNK
  5. CLONIDINE [Concomitant]
     Dosage: UNK UKN, UNK

REACTIONS (1)
  - COLON CANCER RECURRENT [None]
